FAERS Safety Report 15478695 (Version 4)
Quarter: 2018Q4

REPORT INFORMATION
  Report Type: Spontaneous
  Country: GB (occurrence: GB)
  Receive Date: 20181009
  Receipt Date: 20181114
  Transmission Date: 20190205
  Serious: Yes (Life-Threatening)
  Sender: FDA-Public Use
  Company Number: GB-PFIZER INC-2018405488

PATIENT
  Age: 46 Year
  Sex: Female
  Weight: 110 kg

DRUGS (4)
  1. LANSOPRAZOLE. [Concomitant]
     Active Substance: LANSOPRAZOLE
     Dosage: UNK
  2. TRAMADOL HYDROCHLORIDE. [Concomitant]
     Active Substance: TRAMADOL HYDROCHLORIDE
     Dosage: UNK
  3. GABAPENTIN. [Suspect]
     Active Substance: GABAPENTIN
     Dosage: 2400 MG, 1X/DAY
     Route: 048
     Dates: start: 2015
  4. GABAPENTIN. [Suspect]
     Active Substance: GABAPENTIN
     Indication: NEURALGIA
     Dosage: UNK, 1X/DAY
     Route: 048
     Dates: start: 2015

REACTIONS (3)
  - Suicidal ideation [Recovered/Resolved]
  - Morbid thoughts [Recovered/Resolved]
  - Drug tolerance [Unknown]

NARRATIVE: CASE EVENT DATE: 2015
